FAERS Safety Report 13443368 (Version 1)
Quarter: 2017Q2

REPORT INFORMATION
  Report Type: Spontaneous
  Country: US (occurrence: US)
  Receive Date: 20170413
  Receipt Date: 20170413
  Transmission Date: 20170830
  Serious: Yes (Other)
  Sender: FDA-Public Use
  Company Number: None

PATIENT
  Age: 53 Year
  Sex: Female

DRUGS (1)
  1. NAFACILLIN 2GM D2.4W 100ML BAXTER [Suspect]
     Active Substance: NAFCILLIN\NAFCILLIN SODIUM
     Indication: SPINAL DISORDER
     Route: 042
     Dates: start: 20170317, end: 20170410

REACTIONS (6)
  - Rash [None]
  - Erythema [None]
  - Therapy cessation [None]
  - Pruritus [None]
  - Therapy non-responder [None]
  - Swelling [None]

NARRATIVE: CASE EVENT DATE: 20170410
